FAERS Safety Report 25545882 (Version 1)
Quarter: 2025Q3

REPORT INFORMATION
  Report Type: Spontaneous
  Country: EU (occurrence: EU)
  Receive Date: 20250712
  Receipt Date: 20250712
  Transmission Date: 20251020
  Serious: Yes (Other)
  Sender: AUROBINDO
  Company Number: EU-EMB-M202402567-1

PATIENT
  Sex: Female
  Weight: 90 kg

DRUGS (6)
  1. QUETIAPINE [Suspect]
     Active Substance: QUETIAPINE
     Indication: Psychotic disorder
     Route: 048
     Dates: start: 202401, end: 202410
  2. ASPIRIN [Concomitant]
     Active Substance: ASPIRIN
     Indication: Prophylaxis
     Route: 048
  3. MICONAZOLE [Concomitant]
     Active Substance: MICONAZOLE
     Indication: Tinea versicolour
     Route: 003
     Dates: start: 202403, end: 202403
  4. MICONAZOLE [Concomitant]
     Active Substance: MICONAZOLE
     Route: 003
     Dates: start: 202404, end: 202404
  5. NYSTATIN [Concomitant]
     Active Substance: NYSTATIN
     Indication: Tinea versicolour
     Dosage: UNK UNK, TWO TIMES A DAY
     Route: 003
  6. DINOPROSTONE [Concomitant]
     Active Substance: DINOPROSTONE
     Indication: Labour induction
     Route: 067

REACTIONS (2)
  - Gestational diabetes [Recovered/Resolved]
  - Exposure during pregnancy [Unknown]
